FAERS Safety Report 25204959 (Version 1)
Quarter: 2025Q2

REPORT INFORMATION
  Report Type: Spontaneous
  Country: FR (occurrence: FR)
  Receive Date: 20250416
  Receipt Date: 20250416
  Transmission Date: 20250716
  Serious: Yes (Other)
  Sender: JOHNSON AND JOHNSON
  Company Number: None

PATIENT
  Age: 37 Year
  Sex: Male
  Weight: 68 kg

DRUGS (3)
  1. STELARA [Suspect]
     Active Substance: USTEKINUMAB
     Indication: Crohn^s disease
     Route: 065
     Dates: start: 20230405
  2. LINEZOLID [Suspect]
     Active Substance: LINEZOLID
     Indication: Skin infection
     Dates: start: 20250106, end: 20250307
  3. INVANZ [Suspect]
     Active Substance: ERTAPENEM SODIUM
     Indication: Skin infection
     Dates: start: 20241122, end: 20250307

REACTIONS (1)
  - Hypoacusis [Not Recovered/Not Resolved]

NARRATIVE: CASE EVENT DATE: 20250201
